FAERS Safety Report 6607721-0 (Version None)
Quarter: 2010Q1

REPORT INFORMATION
  Report Type: 
  Country: None (occurrence: None)
  Receive Date: 20100301
  Receipt Date: 20100222
  Transmission Date: 20100710
  Serious: Yes (Other)
  Sender: FDA-Public Use
  Company Number: FR-JNJFOC-20100210672

PATIENT
  Age: 45 Year
  Sex: Female

DRUGS (4)
  1. REMICADE [Suspect]
     Indication: ANKYLOSING SPONDYLITIS
     Route: 042
     Dates: start: 20080301
  2. REMICADE [Suspect]
     Indication: COLITIS ULCERATIVE
     Route: 042
     Dates: start: 20080301
  3. OMEPRAZOLE [Concomitant]
     Dosage: STARTED 3 YEARS AGO
  4. LEVOTHYROX [Concomitant]
     Dosage: STARTED 6 YEARS AGO

REACTIONS (4)
  - AGEUSIA [None]
  - HYPOAESTHESIA ORAL [None]
  - PARAESTHESIA ORAL [None]
  - SWOLLEN TONGUE [None]
